FAERS Safety Report 22002242 (Version 1)
Quarter: 2023Q1

REPORT INFORMATION
  Report Type: Spontaneous
  Country: PL (occurrence: PL)
  Receive Date: 20230217
  Receipt Date: 20230217
  Transmission Date: 20230417
  Serious: Yes (Death, Hospitalization)
  Sender: FDA-Public Use
  Company Number: PL-STRIDES ARCOLAB LIMITED-2023SP002330

PATIENT
  Age: 79 Year
  Sex: Male
  Weight: 96 kg

DRUGS (3)
  1. PREDNISOLONE [Suspect]
     Active Substance: PREDNISOLONE
     Indication: Myocarditis
     Dosage: 1 MILLIGRAM/KILOGRAM, UNKNOWN
     Route: 065
  2. ASPIRIN [Suspect]
     Active Substance: ASPIRIN
     Indication: Myocarditis
     Dosage: 75 MILLIGRAM, UNKNOWN
     Route: 065
  3. NIVOLUMAB [Concomitant]
     Active Substance: NIVOLUMAB
     Indication: Metastatic malignant melanoma
     Dosage: 240 MILLIGRAM, EVERY 3 WEEKS, WITHIN 1.5 MONTHS, THE PATIENT RECEIVED THREE COURSES OF THE TREATMENT
     Route: 065

REACTIONS (1)
  - Drug ineffective [Fatal]
